FAERS Safety Report 9059440 (Version 1)
Quarter: 2013Q1

REPORT INFORMATION
  Report Type: Spontaneous
  Country: US (occurrence: US)
  Receive Date: 20130212
  Receipt Date: 20130212
  Transmission Date: 20140127
  Serious: Yes (Other)
  Sender: FDA-Public Use
  Company Number: US-AMGEN-USASP2013007811

PATIENT
  Age: 45 Year
  Sex: Female
  Weight: 81.18 kg

DRUGS (1)
  1. ENBREL [Suspect]
     Indication: RHEUMATOID ARTHRITIS
     Dosage: 50 MG, WEEKLY
     Route: 058
     Dates: start: 20121001

REACTIONS (5)
  - Memory impairment [Unknown]
  - Presyncope [Unknown]
  - Dizziness [Unknown]
  - Muscle tightness [Unknown]
  - Headache [Unknown]
